FAERS Safety Report 16768361 (Version 2)
Quarter: 2019Q3

REPORT INFORMATION
  Report Type: Spontaneous
  Country: US (occurrence: US)
  Receive Date: 20190903
  Receipt Date: 20190909
  Transmission Date: 20191005
  Serious: Yes (Life-Threatening, Hospitalization, Other)
  Sender: FDA-Public Use
  Company Number: US-SA-2019SA241225

PATIENT
  Age: 2 Year
  Sex: Female

DRUGS (5)
  1. SUCCINYLCHOLINE [SUXAMETHONIUM] [Concomitant]
     Active Substance: SUCCINYLCHOLINE
  2. LIDOCAINE. [Concomitant]
     Active Substance: LIDOCAINE
  3. KETAMINE [Concomitant]
     Active Substance: KETAMINE
  4. PARACETAMOL [Suspect]
     Active Substance: ACETAMINOPHEN
  5. DIPHENHYDRAMINE. [Suspect]
     Active Substance: DIPHENHYDRAMINE

REACTIONS (9)
  - Drug-induced liver injury [Recovered/Resolved]
  - Hypoglycaemia [Recovered/Resolved]
  - Overdose [Not Recovered/Not Resolved]
  - Hepatic failure [Recovered/Resolved]
  - Speech disorder [Not Recovered/Not Resolved]
  - Lethargy [Recovered/Resolved]
  - Vomiting [Recovered/Resolved]
  - Seizure [Recovered/Resolved]
  - Sinus tachycardia [Recovered/Resolved]
